FAERS Safety Report 6705297-0 (Version None)
Quarter: 2010Q2

REPORT INFORMATION
  Report Type: 
  Country: None (occurrence: None)
  Receive Date: 20100430
  Receipt Date: 20100428
  Transmission Date: 20101027
  Serious: Yes (Other)
  Sender: FDA-Public Use
  Company Number: US-ROCHE-698849

PATIENT
  Sex: Male
  Weight: 88.5 kg

DRUGS (6)
  1. PEGINTERFERON ALFA-2A [Suspect]
     Indication: HIV INFECTION
     Dosage: DOSE: 180 MCG PER 0.5 ML WEEKLY
     Route: 058
     Dates: start: 20100105, end: 20100330
  2. ATRIPLA [Concomitant]
     Dosage: 600/200/300 MG QD
     Dates: start: 20081115, end: 20100105
  3. HYZAAR [Concomitant]
     Dosage: 100/25 MG QD
     Dates: start: 20070901
  4. ASPIRIN [Concomitant]
     Dates: start: 20061010
  5. IBUPROFEN [Concomitant]
     Dates: start: 20100105
  6. BISCO-LAX [Concomitant]
     Dosage: DOSE: 5MG PRN
     Dates: start: 20100224, end: 20100406

REACTIONS (1)
  - DIVERTICULUM [None]
